FAERS Safety Report 21452292 (Version 1)
Quarter: 2022Q4

REPORT INFORMATION
  Report Type: Report from Study
  Country: US (occurrence: US)
  Receive Date: 20221013
  Receipt Date: 20221013
  Transmission Date: 20230112
  Serious: No
  Sender: FDA-Public Use
  Company Number: US-ABBVIE-4152141

PATIENT
  Sex: Male

DRUGS (15)
  1. SKYRIZI [Suspect]
     Active Substance: RISANKIZUMAB-RZAA
     Indication: Psoriasis
     Dosage: 150 MG
     Route: 058
     Dates: start: 20210820
  2. ATORVASTATIN [Concomitant]
     Active Substance: ATORVASTATIN
     Indication: Product used for unknown indication
     Dosage: 40 MG
     Route: 048
  3. TRIAMCINOLON CRE 0.1% [Concomitant]
     Indication: Product used for unknown indication
     Route: 065
  4. METOPROLOL S TB2 [Concomitant]
     Indication: Product used for unknown indication
     Dosage: 50 MG
     Route: 048
  5. ASPIRIN CHE 81MG [Concomitant]
     Indication: Product used for unknown indication
     Route: 065
  6. MAGNESIUM OX [Concomitant]
     Indication: Product used for unknown indication
     Dosage: 500 MG
     Route: 048
  7. METFORMIN HYDROCHLORIDE [Concomitant]
     Active Substance: METFORMIN HYDROCHLORIDE
     Indication: Product used for unknown indication
     Dosage: 1000 MG
     Route: 048
  8. CALCIUM CITR TAB 315-250M [Concomitant]
     Indication: Product used for unknown indication
     Route: 065
  9. ZEAXANTHIN POW [Concomitant]
     Indication: Product used for unknown indication
     Route: 065
  10. FISH OIL [Concomitant]
     Active Substance: FISH OIL
     Indication: Product used for unknown indication
     Dosage: 1360 MG
     Route: 048
  11. LUTEIN [Concomitant]
     Active Substance: LUTEIN
     Indication: Product used for unknown indication
     Dosage: 40 MG
     Route: 048
  12. JARDIANCE [Concomitant]
     Active Substance: EMPAGLIFLOZIN
     Indication: Product used for unknown indication
     Dosage: 10 MG
     Route: 048
  13. OZEMPIC [Concomitant]
     Active Substance: SEMAGLUTIDE
     Indication: Product used for unknown indication
     Dosage: (0.2 SOP 2MG/1.5M
     Route: 065
  14. LISINOPRIL [Concomitant]
     Active Substance: LISINOPRIL
     Indication: Product used for unknown indication
     Dosage: 10 MG
     Route: 048
  15. NAPROXEN [Concomitant]
     Active Substance: NAPROXEN
     Indication: Product used for unknown indication
     Dosage: 500 MG
     Route: 048

REACTIONS (5)
  - Psoriasis [Not Recovered/Not Resolved]
  - Nail pitting [Not Recovered/Not Resolved]
  - Muscle disorder [Not Recovered/Not Resolved]
  - Blood cholesterol increased [Not Recovered/Not Resolved]
  - Gait disturbance [Not Recovered/Not Resolved]
